FAERS Safety Report 5105155-1 (Version None)
Quarter: 2006Q3

REPORT INFORMATION
  Report Type: 
  Country: None (occurrence: None)
  Receive Date: 20060914
  Receipt Date: 20060601
  Transmission Date: 20061208
  Serious: Yes (Hospitalization, Other)
  Sender: FDA-Public Use
  Company Number: BE-ABBOTT-06P-013-0334889-00

PATIENT
  Sex: Male
  Weight: 84 kg

DRUGS (12)
  1. KALETRA [Suspect]
     Indication: HIV INFECTION
     Route: 048
     Dates: start: 20060321, end: 20060630
  2. VIREAD [Concomitant]
     Indication: HIV INFECTION
     Route: 048
     Dates: start: 20060413, end: 20060630
  3. NEVIRAPINE [Concomitant]
     Indication: HIV INFECTION
     Route: 048
     Dates: start: 20040819, end: 20060530
  4. LAMIVUDINE [Concomitant]
     Indication: HIV INFECTION
     Route: 048
     Dates: start: 20040627, end: 20060630
  5. PRAVASTATIN [Concomitant]
     Indication: BLOOD CHOLESTEROL INCREASED
     Route: 048
     Dates: start: 20040914
  6. BEFACT FORTE [Concomitant]
     Indication: DRUG USE FOR UNKNOWN INDICATION
     Route: 048
  7. ERGENYL CHRONO [Concomitant]
     Indication: EPILEPSY
     Route: 048
     Dates: start: 20040914, end: 20060616
  8. AMITRIPTYLINE HYDROCHLORIDE [Concomitant]
     Indication: POLYNEUROPATHY
     Route: 048
     Dates: start: 20041017
  9. BETAMETHASONE VALERATE [Concomitant]
     Indication: ECZEMA
     Route: 061
     Dates: start: 20050321
  10. BETAMETHASONE VALERATE [Concomitant]
     Indication: ERYTHEMA
  11. TRIZIVIR [Concomitant]
     Indication: DRUG USE FOR UNKNOWN INDICATION
     Dates: end: 20060401
  12. LYRICA [Concomitant]
     Indication: DRUG USE FOR UNKNOWN INDICATION
     Dates: start: 20060602

REACTIONS (18)
  - ANAEMIA MEGALOBLASTIC [None]
  - CANDIDIASIS [None]
  - DRUG TOXICITY [None]
  - DYSPNOEA [None]
  - ERYTHEMA [None]
  - FATIGUE [None]
  - FEELING HOT [None]
  - FOLATE DEFICIENCY [None]
  - HEADACHE [None]
  - HYPERHIDROSIS [None]
  - LYMPHOCYTIC INFILTRATION [None]
  - PHARYNGOLARYNGEAL PAIN [None]
  - PYREXIA [None]
  - SKIN LESION [None]
  - STAPHYLOCOCCAL INFECTION [None]
  - UNEVALUABLE EVENT [None]
  - UPPER RESPIRATORY TRACT INFECTION [None]
  - ZINC DEFICIENCY [None]
